FAERS Safety Report 12287446 (Version 1)
Quarter: 2016Q2

REPORT INFORMATION
  Report Type: Spontaneous
  Country: HK (occurrence: HK)
  Receive Date: 20160420
  Receipt Date: 20160420
  Transmission Date: 20160815
  Serious: Yes (Hospitalization)
  Sender: FDA-Public Use
  Company Number: HK-FRESENIUS KABI-FK201602018

PATIENT
  Age: 61 Year
  Sex: Male

DRUGS (1)
  1. CISPLATIN (MANUFACTURER UNKNOWN) [Suspect]
     Active Substance: CISPLATIN
     Indication: HEPATOCELLULAR CARCINOMA

REACTIONS (1)
  - Pancreatitis acute [Unknown]
